FAERS Safety Report 7550103-8 (Version None)
Quarter: 2011Q2

REPORT INFORMATION
  Report Type: 
  Country: None (occurrence: None)
  Receive Date: 20110615
  Receipt Date: 20101004
  Transmission Date: 20111010
  Serious: Yes (Hospitalization)
  Sender: FDA-Public Use
  Company Number: AT-CEPHALON-2011003039

PATIENT
  Sex: Male
  Weight: 64 kg

DRUGS (5)
  1. BORTEZOMIB [Suspect]
     Dates: start: 20100920
  2. DEXAMETHASONE [Suspect]
     Dates: start: 20100920
  3. AMIODARONE HCL [Concomitant]
  4. BENDAMUSTINE HCL [Suspect]
     Route: 042
     Dates: start: 20100920
  5. BORTEZOMIB [Suspect]
     Dates: start: 20100930

REACTIONS (4)
  - VERTIGO [None]
  - ATAXIA [None]
  - DIZZINESS [None]
  - ASTHENIA [None]
